FAERS Safety Report 16277259 (Version 1)
Quarter: 2019Q2

REPORT INFORMATION
  Report Type: Spontaneous
  Country: US (occurrence: US)
  Receive Date: 20190506
  Receipt Date: 20190506
  Transmission Date: 20190711
  Serious: Yes (Other)
  Sender: FDA-Public Use
  Company Number: None

PATIENT
  Age: 86 Year
  Sex: Female

DRUGS (2)
  1. ARANESP [Suspect]
     Active Substance: DARBEPOETIN ALFA
     Indication: ANAEMIA
     Dosage: ?          OTHER FREQUENCY:EVERY 28 DAYS;?
     Route: 058
  2. ANASTROZOLE. [Concomitant]
     Active Substance: ANASTROZOLE

REACTIONS (1)
  - Breast cancer [None]

NARRATIVE: CASE EVENT DATE: 20190503
